FAERS Safety Report 13192296 (Version 4)
Quarter: 2017Q2

REPORT INFORMATION
  Report Type: Spontaneous
  Country: US (occurrence: US)
  Receive Date: 20170207
  Receipt Date: 20170518
  Transmission Date: 20170830
  Serious: Yes (Hospitalization, Other)
  Sender: FDA-Public Use
  Company Number: US-009507513-1702USA001784

PATIENT
  Age: 65 Year
  Sex: Female
  Weight: 122.45 kg

DRUGS (2)
  1. ZEPATIER [Suspect]
     Active Substance: ELBASVIR\GRAZOPREVIR
     Indication: HEPATITIS C
     Dosage: 100/50MG (1 TABLET), QD
     Route: 048
     Dates: start: 20170105, end: 201701
  2. ZEPATIER [Suspect]
     Active Substance: ELBASVIR\GRAZOPREVIR
     Dosage: 100/50MG (1 TABLET), QD
     Route: 048
     Dates: start: 20170129, end: 20170202

REACTIONS (3)
  - Nausea [Recovered/Resolved]
  - Pneumonia [Unknown]
  - Headache [Recovered/Resolved]

NARRATIVE: CASE EVENT DATE: 20170105
